FAERS Safety Report 23326244 (Version 2)
Quarter: 2024Q1

REPORT INFORMATION
  Report Type: Spontaneous
  Country: US (occurrence: US)
  Receive Date: 20231221
  Receipt Date: 20240103
  Transmission Date: 20240409
  Serious: Yes (Life-Threatening, Hospitalization)
  Sender: FDA-Public Use
  Company Number: US-MYLANLABS-2023M1124825

PATIENT
  Age: 3 Week
  Sex: Female

DRUGS (5)
  1. LACOSAMIDE [Suspect]
     Active Substance: LACOSAMIDE
     Indication: Neonatal seizure
     Dosage: 2 MILLIGRAM/KILOGRAM, LOADING DOSE, INTRAVENOUS INFUSION
     Route: 042
  2. LEVETIRACETAM [Suspect]
     Active Substance: LEVETIRACETAM
     Indication: Neonatal seizure
     Dosage: 60 MILLIGRAM/KILOGRAM, BID, WAS RECEIVING 60 MG/KG DIVIDED TWICE DAILY INSTEAD OF 100 MG/KG....
     Route: 042
  3. FOSPHENYTOIN [Suspect]
     Active Substance: FOSPHENYTOIN
     Indication: Neonatal seizure
     Dosage: 6 MILLIGRAM/KILOGRAM, 6 MG/KG DIVIDED TWICE DAILY
     Route: 042
  4. PHENOBARBITAL [Suspect]
     Active Substance: PHENOBARBITAL
     Indication: Neonatal seizure
     Dosage: 2 MILLIGRAM/KILOGRAM, BID, WAS RECEIVING 2 MG/KG TWICE DAILY INSTEAD OF 3 MG/KG TWICE DAILY.....
     Route: 042
  5. PYRIDOXINE [Suspect]
     Active Substance: PYRIDOXINE
     Indication: Neonatal seizure
     Dosage: UNK
     Route: 065

REACTIONS (6)
  - Cardiac arrest neonatal [Recovered/Resolved]
  - Atrioventricular block second degree [Recovered/Resolved]
  - Treatment failure [Unknown]
  - Off label use [Unknown]
  - Dose calculation error [Unknown]
  - Incorrect dose administered [Unknown]
